FAERS Safety Report 8189148-6 (Version None)
Quarter: 2012Q1

REPORT INFORMATION
  Report Type: 
  Country: None (occurrence: None)
  Receive Date: 20120306
  Receipt Date: 20120306
  Transmission Date: 20120608
  Serious: Yes (Other)
  Sender: FDA-Public Use
  Company Number: None

PATIENT
  Age: 60 Year
  Sex: Female
  Weight: 71.2147 kg

DRUGS (1)
  1. TRAMADOL HCL [Suspect]
     Indication: HEPATITIS C
     Dosage: 2 TABLETS TWICE DAILY BY MOUTH
     Route: 048
     Dates: start: 20120206, end: 20120210

REACTIONS (4)
  - ECONOMIC PROBLEM [None]
  - PRODUCT SUBSTITUTION ISSUE [None]
  - UNEVALUABLE EVENT [None]
  - EMOTIONAL DISORDER [None]
